FAERS Safety Report 6447363-3 (Version None)
Quarter: 2009Q4

REPORT INFORMATION
  Report Type: 
  Country: None (occurrence: None)
  Receive Date: 20091119
  Receipt Date: 20091112
  Transmission Date: 20100525
  Serious: Yes (Hospitalization, Other)
  Sender: FDA-Public Use
  Company Number: US-ELI_LILLY_AND_COMPANY-US200908006297

PATIENT
  Sex: Male
  Weight: 117.91 kg

DRUGS (13)
  1. BYETTA [Suspect]
     Indication: TYPE 2 DIABETES MELLITUS
     Dosage: 5 UG, 2/D
     Dates: start: 20080826, end: 20080827
  2. LOVASTATIN [Concomitant]
     Indication: BLOOD CHOLESTEROL INCREASED
     Dates: start: 20000101
  3. PEPCID [Concomitant]
     Indication: DYSPEPSIA
  4. GLIPIZIDE [Concomitant]
     Dates: end: 20080828
  5. METFORMIN HCL [Concomitant]
     Dates: end: 20080828
  6. ACTOS [Concomitant]
  7. GEMFIBROZIL [Concomitant]
     Dates: end: 20080828
  8. LABETALOL HCL [Concomitant]
     Dosage: UNK, UNK
     Dates: start: 20080618, end: 20080828
  9. LABETALOL HCL [Concomitant]
     Dosage: 50 MG, 2/D
     Dates: start: 20080828
  10. PLAVIX [Concomitant]
     Dosage: 75 MG, DAILY (1/D)
  11. CITALOPRAM HYDROBROMIDE [Concomitant]
  12. ALPRAZOLAM [Concomitant]
  13. FISH OIL [Concomitant]

REACTIONS (9)
  - ABDOMINAL PAIN [None]
  - DIARRHOEA [None]
  - LIPASE INCREASED [None]
  - NEPHROLITHIASIS [None]
  - PANCREATITIS [None]
  - POLYURIA [None]
  - RENAL FAILURE ACUTE [None]
  - RENAL FAILURE CHRONIC [None]
  - WEIGHT DECREASED [None]
